FAERS Safety Report 24685922 (Version 1)
Quarter: 2024Q4

REPORT INFORMATION
  Report Type: Spontaneous
  Country: IN (occurrence: IN)
  Receive Date: 20241202
  Receipt Date: 20241202
  Transmission Date: 20250114
  Serious: Yes (Hospitalization)
  Sender: MYLAN
  Company Number: IN-MYLANLABS-2024M1105121

PATIENT
  Age: 30 Year
  Sex: Female

DRUGS (6)
  1. DEXAMETHASONE [Suspect]
     Active Substance: DEXAMETHASONE
     Indication: Product used for unknown indication
     Dosage: 4 MILLIGRAM, Q8H
     Route: 042
  2. DEXAMETHASONE [Suspect]
     Active Substance: DEXAMETHASONE
     Indication: Product used for unknown indication
     Dosage: 12 MILLIGRAM
     Route: 048
  3. ESCITALOPRAM [Suspect]
     Active Substance: ESCITALOPRAM OXALATE
     Indication: Perinatal depression
     Dosage: UNK
     Route: 065
  4. OLANZAPINE [Suspect]
     Active Substance: OLANZAPINE
     Indication: Perinatal depression
     Dosage: 15 MILLIGRAM, OVER 4 WEEKS
     Route: 065
  5. VITAMIN B12 [Suspect]
     Active Substance: CYANOCOBALAMIN
     Indication: Supplementation therapy
     Dosage: UNK
     Route: 048
  6. RISPERIDONE [Suspect]
     Active Substance: RISPERIDONE
     Indication: Perinatal depression
     Dosage: UNK
     Route: 065

REACTIONS (2)
  - Lactation insufficiency [Recovered/Resolved]
  - Maternal exposure during breast feeding [Recovered/Resolved]
